FAERS Safety Report 4525576-5 (Version None)
Quarter: 2004Q4

REPORT INFORMATION
  Report Type: 
  Country: None (occurrence: None)
  Receive Date: 20041116
  Receipt Date: 20041004
  Transmission Date: 20050328
  Serious: No
  Sender: FDA-Public Use
  Company Number: SO4-USA-06447-01

PATIENT
  Age: 70 Year
  Sex: Female

DRUGS (3)
  1. NAMENDA [Suspect]
     Indication: DEMENTIA ALZHEIMER'S TYPE
     Dates: start: 20040101, end: 20040101
  2. NAMENDA [Suspect]
     Indication: DEMENTIA ALZHEIMER'S TYPE
     Dates: start: 20040101
  3. SEROQUEL [Concomitant]

REACTIONS (5)
  - AGGRESSION [None]
  - AGITATION [None]
  - BALANCE DISORDER [None]
  - HYPERACUSIS [None]
  - SPEECH DISORDER [None]
